FAERS Safety Report 10057166 (Version 2)
Quarter: 2014Q2

REPORT INFORMATION
  Report Type: Spontaneous
  Country: US (occurrence: US)
  Receive Date: 20140403
  Receipt Date: 20140416
  Transmission Date: 20141212
  Serious: No
  Sender: FDA-Public Use
  Company Number: US-B.I. PHARMACEUTICALS,INC./RIDGEFIELD-2014-BI-13129BP

PATIENT
  Age: 51 Year
  Sex: Female
  Weight: 84 kg

DRUGS (6)
  1. SPIRIVA [Suspect]
     Indication: CHRONIC OBSTRUCTIVE PULMONARY DISEASE
     Dosage: 18 MCG
     Route: 055
     Dates: start: 2013
  2. SYMBICORT [Concomitant]
     Indication: CHRONIC OBSTRUCTIVE PULMONARY DISEASE
     Dosage: 4 PUF
     Route: 055
  3. ALBUTEROL [Concomitant]
     Indication: ILL-DEFINED DISORDER
     Route: 055
  4. METOPROLOL [Concomitant]
     Indication: HYPERTENSION
     Dosage: 25 MG
     Route: 048
  5. TEMAZEPAM [Concomitant]
     Indication: INSOMNIA
     Dosage: 30 MG
     Route: 048
  6. MULTIVITAMINS [Concomitant]
     Dosage: 1 ANZ
     Route: 048

REACTIONS (4)
  - Bronchitis [Not Recovered/Not Resolved]
  - Pneumonia [Recovered/Resolved]
  - Dyspnoea [Not Recovered/Not Resolved]
  - Product quality issue [Recovered/Resolved]
